FAERS Safety Report 14252758 (Version 1)
Quarter: 2017Q4

REPORT INFORMATION
  Report Type: Spontaneous
  Country: GB (occurrence: GB)
  Receive Date: 20171205
  Receipt Date: 20171205
  Transmission Date: 20180321
  Serious: Yes (Other)
  Sender: FDA-Public Use
  Company Number: GB-ASTRAZENECA-2017SF23038

PATIENT
  Age: 70 Year
  Sex: Female
  Weight: 60 kg

DRUGS (11)
  1. SALBUTAMOL [Concomitant]
     Active Substance: ALBUTEROL
     Dosage: 2 DF UP TO FOUR TIMES A DAY.
     Route: 055
     Dates: start: 20170410
  2. DUORESP SPIROMAX [Suspect]
     Active Substance: BUDESONIDE\FORMOTEROL
     Route: 055
     Dates: start: 20171025
  3. INFLUENZA VIRUS [Concomitant]
     Active Substance: INFLUENZA VIRUS VACCINE
     Indication: INFLUENZA IMMUNISATION
     Dates: start: 20171007, end: 20171008
  4. ACETYLSALICYLIC ACID [Concomitant]
     Active Substance: ASPIRIN
     Dates: start: 20170410
  5. ZOSTAVAX [Concomitant]
     Active Substance: VARICELLA-ZOSTER VIRUS STRAIN OKA/MERCK LIVE ANTIGEN
     Indication: IMMUNISATION
     Dates: start: 20171007, end: 20171008
  6. LOSARTAN. [Concomitant]
     Active Substance: LOSARTAN
     Dosage: 1 DF, DAILY DO NOT TAKE IF DEHYDRATED.
     Dates: start: 20170410
  7. OMEPRAZOLE. [Concomitant]
     Active Substance: OMEPRAZOLE
     Indication: PROPHYLAXIS AGAINST GASTROINTESTINAL ULCER
     Dosage: 1 DF DAILY ON DAYS TAKING NAPROXEN TO PROTE
     Dates: start: 20170807
  8. INDAPAMIDE. [Concomitant]
     Active Substance: INDAPAMIDE
     Dates: start: 20170410
  9. EZETIMIBE. [Concomitant]
     Active Substance: EZETIMIBE
     Dates: start: 20170410
  10. NAPROXEN. [Concomitant]
     Active Substance: NAPROXEN
     Dosage: ONE OR TWO TWICE A DAY. DO NOT TA
     Dates: start: 20170807
  11. CLENIL MODULITE [Concomitant]
     Active Substance: BECLOMETHASONE DIPROPIONATE
     Dosage: ONE OR TWO DOSES TWICE DAILY
     Route: 055
     Dates: start: 20170424

REACTIONS (1)
  - Syncope [Recovered/Resolved]

NARRATIVE: CASE EVENT DATE: 20171108
